FAERS Safety Report 16950009 (Version 2)
Quarter: 2019Q4

REPORT INFORMATION
  Report Type: Spontaneous
  Country: DE (occurrence: DE)
  Receive Date: 20191023
  Receipt Date: 20191126
  Transmission Date: 20200122
  Serious: Yes (Death)
  Sender: FDA-Public Use
  Company Number: DE-TEVA-2019-DE-1124875

PATIENT
  Age: 55 Year
  Sex: Male
  Weight: 95 kg

DRUGS (6)
  1. L-THYROXIN [Concomitant]
     Active Substance: LEVOTHYROXINE SODIUM
     Dosage: 100 MICROGRAM
     Route: 048
  2. CERTOPARIN [Concomitant]
     Active Substance: CERTOPARIN SODIUM
     Dosage: DAILY DOSE: 3000 IU INTERNATIONAL UNIT(S) EVERY DAYS
     Route: 058
     Dates: start: 20190117, end: 20190118
  3. PRASUGREL. [Suspect]
     Active Substance: PRASUGREL
     Indication: ACUTE MYOCARDIAL INFARCTION
     Dosage: 60 MILLIGRAM
     Route: 048
  4. VENLAFAXINE [Suspect]
     Active Substance: VENLAFAXINE HYDROCHLORIDE
     Dosage: 112.5MG + 12.5MG -} 1-0-0
     Route: 048
  5. RAMIPRIL. [Concomitant]
     Active Substance: RAMIPRIL
     Dosage: 2.5 MG
  6. ASS 100 [Suspect]
     Active Substance: ASPIRIN
     Indication: ACUTE MYOCARDIAL INFARCTION
     Dosage: 250 MG
     Route: 048
     Dates: start: 20190117, end: 20190118

REACTIONS (2)
  - Intraventricular haemorrhage [Fatal]
  - Cerebral haemorrhage [Fatal]

NARRATIVE: CASE EVENT DATE: 20190118
